FAERS Safety Report 6652600-6 (Version None)
Quarter: 2010Q1

REPORT INFORMATION
  Report Type: 
  Country: None (occurrence: None)
  Receive Date: 20100326
  Receipt Date: 20100317
  Transmission Date: 20100710
  Serious: Yes (Hospitalization)
  Sender: FDA-Public Use
  Company Number: US-BIOGENIDEC-2010BI000500

PATIENT
  Age: 67 Year
  Sex: Female

DRUGS (3)
  1. AVONEX [Suspect]
     Indication: MULTIPLE SCLEROSIS
     Route: 030
     Dates: start: 20080103, end: 20100129
  2. AVONEX [Suspect]
     Route: 030
     Dates: start: 19970701, end: 20030801
  3. AVONEX [Suspect]
     Route: 030
     Dates: start: 20030801, end: 20070701

REACTIONS (3)
  - GASTRIC ULCER HAEMORRHAGE [None]
  - HYPERTENSION [None]
  - OESOPHAGEAL ULCER HAEMORRHAGE [None]
